FAERS Safety Report 21853317 (Version 1)
Quarter: 2023Q1

REPORT INFORMATION
  Report Type: Spontaneous
  Country: US (occurrence: US)
  Receive Date: 20230112
  Receipt Date: 20230112
  Transmission Date: 20230418
  Serious: Yes (Life-Threatening, Hospitalization)
  Sender: FDA-Public Use
  Company Number: US-MYLANLABS-2022M1141133

PATIENT
  Age: 58 Year
  Sex: Female

DRUGS (6)
  1. DEXAMETHASONE [Suspect]
     Active Substance: DEXAMETHASONE
     Indication: COVID-19 pneumonia
     Dosage: 6 MILLIGRAM, QD
     Route: 065
  2. DEXAMETHASONE [Suspect]
     Active Substance: DEXAMETHASONE
     Indication: Immunosuppressant drug therapy
  3. ACYCLOVIR [Suspect]
     Active Substance: ACYCLOVIR
     Indication: Herpes simplex
     Dosage: 10 MILLIGRAM/KILOGRAM, BID
     Route: 042
  4. TOFACITINIB [Suspect]
     Active Substance: TOFACITINIB
     Indication: COVID-19 pneumonia
     Dosage: 10 MILLIGRAM, BID
     Route: 065
  5. REMDESIVIR [Concomitant]
     Active Substance: REMDESIVIR
     Indication: Respiratory failure
     Dosage: 200 MILLIGRAM (ON DAY 1)
     Route: 065
  6. REMDESIVIR [Concomitant]
     Active Substance: REMDESIVIR
     Indication: COVID-19 pneumonia
     Dosage: 100 MILLIGRAM
     Route: 065

REACTIONS (17)
  - Septic shock [Unknown]
  - Haemophagocytic lymphohistiocytosis [Unknown]
  - Herpes simplex [Unknown]
  - Pneumonia viral [Unknown]
  - Enterococcal infection [Unknown]
  - Respiratory distress [Unknown]
  - Encephalopathy [Unknown]
  - Brain stem syndrome [Unknown]
  - Areflexia [Unknown]
  - Liver injury [Unknown]
  - Acute kidney injury [Unknown]
  - Coagulopathy [Unknown]
  - Metabolic acidosis [Unknown]
  - Subarachnoid haemorrhage [Unknown]
  - Haematoma muscle [Unknown]
  - Off label use [Unknown]
  - Drug ineffective [Unknown]
